FAERS Safety Report 7197983-6 (Version None)
Quarter: 2010Q4

REPORT INFORMATION
  Report Type: 
  Country: None (occurrence: None)
  Receive Date: 20101227
  Receipt Date: 20101215
  Transmission Date: 20110411
  Serious: Yes (Hospitalization)
  Sender: FDA-Public Use
  Company Number: US-SANOFI-AVENTIS-2010SA076960

PATIENT
  Sex: Female

DRUGS (3)
  1. ARAVA [Suspect]
     Indication: ANKYLOSING SPONDYLITIS
     Dosage: TWO TABLETS PO QD X 10 FOR A TOTAL OF 3 CYCLES
     Route: 065
     Dates: start: 20050501, end: 20080401
  2. ENBREL [Suspect]
     Indication: ANKYLOSING SPONDYLITIS
     Route: 058
     Dates: start: 20090901, end: 20100801
  3. METHOTREXATE [Suspect]
     Indication: ANKYLOSING SPONDYLITIS
     Route: 065
     Dates: start: 20030201, end: 20050501

REACTIONS (3)
  - NECK MASS [None]
  - TONGUE CARCINOMA STAGE III [None]
  - TONSIL CANCER [None]
